FAERS Safety Report 22650677 (Version 1)
Quarter: 2023Q2

REPORT INFORMATION
  Report Type: Spontaneous
  Country: US (occurrence: None)
  Receive Date: 20230627
  Receipt Date: 20230627
  Transmission Date: 20230721
  Serious: No
  Sender: FDA-Public Use
  Company Number: None

PATIENT
  Age: 71 Year
  Sex: Male
  Weight: 75.15 kg

DRUGS (5)
  1. ALFUZOSIN HYDROCHLORIDE ER [Suspect]
     Active Substance: ALFUZOSIN HYDROCHLORIDE
  2. TIMOLOL [Concomitant]
     Active Substance: TIMOLOL
  3. ROSUVASTATIN [Concomitant]
     Active Substance: ROSUVASTATIN
  4. multipurpose vitamin [Concomitant]
  5. IRON [Concomitant]
     Active Substance: IRON

REACTIONS (12)
  - Dizziness [None]
  - Fatigue [None]
  - Contusion [None]
  - Decreased appetite [None]
  - Hypoaesthesia [None]
  - Hypoaesthesia [None]
  - Flushing [None]
  - Haematocrit decreased [None]
  - Haemoglobin decreased [None]
  - Red blood cell count decreased [None]
  - Neutrophil count decreased [None]
  - Hepatic function abnormal [None]

NARRATIVE: CASE EVENT DATE: 20230613
